FAERS Safety Report 7211348-X (Version None)
Quarter: 2011Q1

REPORT INFORMATION
  Report Type: 
  Country: None (occurrence: None)
  Receive Date: 20110105
  Receipt Date: 20110103
  Transmission Date: 20110831
  Serious: Yes (Death, Other)
  Sender: FDA-Public Use
  Company Number: DE-CEPHALON-2011000038

PATIENT
  Age: 31 Year
  Sex: Female

DRUGS (3)
  1. ARA-C [Concomitant]
     Indication: ACUTE PROMYELOCYTIC LEUKAEMIA
     Dates: start: 20050406, end: 20050413
  2. DEXAMETHASONE [Concomitant]
     Indication: ACUTE PROMYELOCYTIC LEUKAEMIA
  3. TRISENOX [Suspect]
     Indication: ACUTE PROMYELOCYTIC LEUKAEMIA
     Route: 041
     Dates: start: 20050402, end: 20050406

REACTIONS (2)
  - LEUKOCYTOSIS [None]
  - SUBDURAL HAEMATOMA [None]
